FAERS Safety Report 7011779-7 (Version None)
Quarter: 2010Q3

REPORT INFORMATION
  Report Type: 
  Country: None (occurrence: None)
  Receive Date: 20100923
  Receipt Date: 20090710
  Transmission Date: 20110219
  Serious: No
  Sender: FDA-Public Use
  Company Number: US-WYE-H10114709

PATIENT
  Sex: Female
  Weight: 56.75 kg

DRUGS (2)
  1. PREMARIN [Suspect]
     Indication: VULVOVAGINAL DRYNESS
     Route: 067
     Dates: start: 20090601, end: 20090601
  2. AVIANE-28 [Concomitant]

REACTIONS (4)
  - DYSURIA [None]
  - VULVAL OEDEMA [None]
  - VULVOVAGINAL DISCOMFORT [None]
  - VULVOVAGINAL ERYTHEMA [None]
